FAERS Safety Report 6604892-7 (Version None)
Quarter: 2010Q1

REPORT INFORMATION
  Report Type: 
  Country: None (occurrence: None)
  Receive Date: 20100226
  Receipt Date: 20100219
  Transmission Date: 20100710
  Serious: Yes (Other)
  Sender: FDA-Public Use
  Company Number: B0632832A

PATIENT
  Sex: Female
  Weight: 15 kg

DRUGS (3)
  1. FLIXONASE [Suspect]
     Indication: RHINITIS
     Route: 045
     Dates: start: 20100203, end: 20100203
  2. NUROFEN [Concomitant]
  3. ACETYLCYSTEINE [Concomitant]

REACTIONS (13)
  - APNOEA [None]
  - DISORIENTATION [None]
  - DYSPNOEA [None]
  - EPISTAXIS [None]
  - EYE PAIN [None]
  - EYE ROLLING [None]
  - FOREIGN BODY [None]
  - HAEMOPTYSIS [None]
  - LIVIDITY [None]
  - RHINORRHOEA [None]
  - SALIVARY HYPERSECRETION [None]
  - UPPER RESPIRATORY TRACT INFECTION [None]
  - VOMITING [None]
